FAERS Safety Report 8979370 (Version 1)
Quarter: 2012Q4

REPORT INFORMATION
  Report Type: Report from Study
  Country: RU (occurrence: RU)
  Receive Date: 20121221
  Receipt Date: 20121221
  Transmission Date: 20130627
  Serious: Yes (Hospitalization)
  Sender: FDA-Public Use
  Company Number: RU-TEVA-376382ISR

PATIENT
  Age: 65 Year
  Sex: Female

DRUGS (4)
  1. FLUOROURACIL [Suspect]
     Indication: METASTATIC GASTRIC CANCER
     Dosage: 800 mg/m2 Daily; Current cycle 1. days 1-5 in a 21 day cycle
     Route: 041
     Dates: end: 20121126
  2. CISPLATIN [Suspect]
     Indication: METASTATIC GASTRIC CANCER
     Dosage: 80 mg/m2 Daily; Current cycle 1
     Route: 041
     Dates: end: 20121126
  3. DEXAMETHASONE [Suspect]
  4. L-THYROXINE [Suspect]

REACTIONS (9)
  - Blood electrolytes abnormal [Recovered/Resolved]
  - Loss of consciousness [None]
  - Abdominal pain [None]
  - Vomiting [None]
  - Nausea [None]
  - Fatigue [None]
  - Blood potassium decreased [None]
  - Blood sodium decreased [None]
  - Blood calcium decreased [None]
